FAERS Safety Report 11727916 (Version 1)
Quarter: 2015Q4

REPORT INFORMATION
  Report Type: Spontaneous
  Country: US (occurrence: US)
  Receive Date: 20151110
  Receipt Date: 20151110
  Transmission Date: 20160304
  Serious: Yes (Hospitalization)
  Sender: FDA-Public Use
  Company Number: US-ELI_LILLY_AND_COMPANY-US201111006439

PATIENT
  Sex: Female

DRUGS (17)
  1. MIRALAX [Concomitant]
     Active Substance: POLYETHYLENE GLYCOL 3350
  2. TRICOR [Concomitant]
     Active Substance: FENOFIBRATE
  3. ARICEPT [Concomitant]
     Active Substance: DONEPEZIL HYDROCHLORIDE
  4. NEXIUM [Concomitant]
     Active Substance: ESOMEPRAZOLE MAGNESIUM
  5. OXYCODONE [Concomitant]
     Active Substance: OXYCODONE
  6. FISH OIL [Concomitant]
     Active Substance: FISH OIL
  7. RESTASIS [Concomitant]
     Active Substance: CYCLOSPORINE
  8. SANCTURA [Concomitant]
     Active Substance: TROSPIUM CHLORIDE
  9. VITAMIN D [Concomitant]
     Active Substance: CHOLECALCIFEROL
  10. DIOVAN [Concomitant]
     Active Substance: VALSARTAN
  11. ASPIRIN. [Concomitant]
     Active Substance: ASPIRIN
     Dosage: 81 MG, UNK
  12. FLOVENT [Concomitant]
     Active Substance: FLUTICASONE PROPIONATE
  13. FORTEO [Suspect]
     Active Substance: TERIPARATIDE
     Dosage: UNK
  14. LEVOXYL [Concomitant]
     Active Substance: LEVOTHYROXINE SODIUM
  15. SPIRIVA [Concomitant]
     Active Substance: TIOTROPIUM BROMIDE MONOHYDRATE
  16. ZETIA [Concomitant]
     Active Substance: EZETIMIBE
  17. XANAX [Concomitant]
     Active Substance: ALPRAZOLAM

REACTIONS (1)
  - Pneumonia [Recovering/Resolving]
